FAERS Safety Report 6291449-3 (Version None)
Quarter: 2009Q3

REPORT INFORMATION
  Report Type: 
  Country: None (occurrence: None)
  Receive Date: 20090730
  Receipt Date: 20090723
  Transmission Date: 20100115
  Serious: Yes (Other)
  Sender: FDA-Public Use
  Company Number: US-BAYER-200912345BCC

PATIENT
  Age: 31 Year
  Sex: Female
  Weight: 75 kg

DRUGS (3)
  1. MIDOL [Suspect]
     Indication: BACK PAIN
     Dosage: TOTAL DAILY DOSE: 2 DF
     Route: 048
     Dates: start: 20090701, end: 20090721
  2. MIDOL [Suspect]
     Dosage: TOTAL DAILY DOSE: 2 DF
     Route: 048
     Dates: start: 20090723
  3. ATENOLOL [Concomitant]
     Indication: CARDIAC DISORDER
     Route: 065

REACTIONS (4)
  - CHEST DISCOMFORT [None]
  - DIZZINESS [None]
  - FATIGUE [None]
  - PALPITATIONS [None]
